FAERS Safety Report 6687363-1 (Version None)
Quarter: 2010Q2

REPORT INFORMATION
  Report Type: 
  Country: None (occurrence: None)
  Receive Date: 20100416
  Receipt Date: 20100416
  Transmission Date: 20101027
  Serious: Yes (Hospitalization)
  Sender: FDA-Public Use
  Company Number: None

PATIENT
  Age: 60 Year
  Sex: Male
  Weight: 76.4 kg

DRUGS (1)
  1. LORAZEPAM [Suspect]
     Indication: AGITATION
     Dosage: 3 MG OTHER IV
     Route: 042
     Dates: start: 20100318, end: 20100318

REACTIONS (2)
  - AGITATION [None]
  - PATIENT RESTRAINT [None]
